FAERS Safety Report 9770749 (Version 1)
Quarter: 2013Q4

REPORT INFORMATION
  Report Type: Spontaneous
  Country: US (occurrence: US)
  Receive Date: 20131218
  Receipt Date: 20131218
  Transmission Date: 20140711
  Serious: Yes (Hospitalization, Other)
  Sender: FDA-Public Use
  Company Number: US-TEVA-450721USA

PATIENT
  Age: 69 Year
  Sex: Male

DRUGS (1)
  1. COPAXONE [Suspect]
     Indication: MULTIPLE SCLEROSIS
     Dates: start: 20130805

REACTIONS (5)
  - Urinary tract infection [Unknown]
  - Weight decreased [Unknown]
  - Cholecystectomy [Unknown]
  - Hypotonia [Unknown]
  - Muscular weakness [Unknown]
